FAERS Safety Report 16620105 (Version 1)
Quarter: 2019Q3

REPORT INFORMATION
  Report Type: Spontaneous
  Country: US (occurrence: US)
  Receive Date: 20190723
  Receipt Date: 20190723
  Transmission Date: 20191004
  Serious: No
  Sender: FDA-Public Use
  Company Number: US-IGSA-SR10007214

PATIENT
  Age: 57 Year
  Sex: Female
  Weight: 59 kg

DRUGS (4)
  1. PROGRAF [Suspect]
     Active Substance: TACROLIMUS\TACROLIMUS ANHYDROUS
  2. GAMUNEX-C [Suspect]
     Active Substance: HUMAN IMMUNOGLOBULIN G
     Dosage: 60 G, UNK
     Route: 042
     Dates: start: 20180727, end: 20180727
  3. GAMUNEX-C [Suspect]
     Active Substance: HUMAN IMMUNOGLOBULIN G
     Dosage: 60 G, Q.4WK.
     Route: 042
     Dates: start: 20180928, end: 20180928
  4. GAMUNEX-C [Suspect]
     Active Substance: HUMAN IMMUNOGLOBULIN G
     Indication: MYASTHENIA GRAVIS
     Dosage: 60 G, UNK
     Route: 042
     Dates: start: 20180831, end: 20180831

REACTIONS (1)
  - Haemolytic anaemia [Unknown]

NARRATIVE: CASE EVENT DATE: 201808
